FAERS Safety Report 10086017 (Version 1)
Quarter: 2014Q2

REPORT INFORMATION
  Report Type: Report from Study
  Country: CA (occurrence: CA)
  Receive Date: 20140418
  Receipt Date: 20140418
  Transmission Date: 20141212
  Serious: Yes (Life-Threatening, Hospitalization)
  Sender: FDA-Public Use
  Company Number: CA-MERCK-1404CAN010581

PATIENT
  Sex: 0

DRUGS (1)
  1. TEMODAL [Suspect]
     Indication: GLIOBLASTOMA MULTIFORME
     Dosage: 75 MG/M2, UNK

REACTIONS (4)
  - Toxicity to various agents [Unknown]
  - Central nervous system necrosis [Unknown]
  - Brain oedema [Unknown]
  - Intracranial pressure increased [Unknown]
